FAERS Safety Report 4637072-5 (Version None)
Quarter: 2005Q2

REPORT INFORMATION
  Report Type: 
  Country: None (occurrence: None)
  Receive Date: 20050325
  Receipt Date: 20041215
  Transmission Date: 20051028
  Serious: Yes (Hospitalization, Other)
  Sender: FDA-Public Use
  Company Number: USA030536378

PATIENT
  Age: 83 Year
  Sex: Female

DRUGS (13)
  1. EVISTA [Suspect]
     Indication: OSTEOPOROSIS
     Dosage: 60 MG/D
     Dates: start: 19980101, end: 20040101
  2. FORTEO [Suspect]
     Dosage: 20 UG/1 DAY
     Dates: start: 20040804
  3. ANTIHYPERTENSIVE [Concomitant]
  4. ZOLOFT [Concomitant]
  5. MILD DIURETIC [Concomitant]
  6. CALCIUM GLUCONATE [Concomitant]
  7. FOSAMAX [Concomitant]
  8. ACTONEL [Concomitant]
  9. MIACALCIN [Concomitant]
  10. VITAMIN D [Concomitant]
  11. CALCITONIN [Concomitant]
  12. CALCITRIOL [Concomitant]
  13. CALCIUM WITH VITAMIN D [Concomitant]

REACTIONS (16)
  - APPETITE DISORDER [None]
  - ASTHENIA [None]
  - BLOOD CALCIUM INCREASED [None]
  - BLOOD PRESSURE DECREASED [None]
  - DRUG INEFFECTIVE [None]
  - DYSPHAGIA [None]
  - FEELING ABNORMAL [None]
  - HEADACHE [None]
  - HEART RATE DECREASED [None]
  - HIP FRACTURE [None]
  - INJECTION SITE ERYTHEMA [None]
  - LOWER LIMB DEFORMITY [None]
  - MUSCLE SPASMS [None]
  - NAUSEA [None]
  - OVERDOSE [None]
  - WEIGHT DECREASED [None]
